FAERS Safety Report 8880785 (Version 2)
Quarter: 2012Q4

REPORT INFORMATION
  Report Type: 
  Country: GR (occurrence: GR)
  Receive Date: 20121101
  Receipt Date: 20121114
  Transmission Date: 20130627
  Serious: Yes (Hospitalization)
  Sender: FDA-Public Use
  Company Number: GR-GLAXOSMITHKLINE-B0841644A

PATIENT
  Age: 11 Month
  Sex: Female

DRUGS (3)
  1. CEFUROXIME [Suspect]
     Indication: INFECTION
  2. AMIKACIN [Concomitant]
  3. METRONIDAZOLE [Concomitant]

REACTIONS (7)
  - Hepatic enzyme abnormal [Recovered/Resolved]
  - Thrombocytopenia [Recovered/Resolved]
  - Anaemia [Recovered/Resolved]
  - White blood cell count decreased [Recovered/Resolved]
  - Abdominal distension [Recovered/Resolved]
  - Postoperative fever [Recovered/Resolved]
  - Drug ineffective [Recovered/Resolved]
